FAERS Safety Report 11419510 (Version 2)
Quarter: 2015Q3

REPORT INFORMATION
  Report Type: Spontaneous
  Country: US (occurrence: US)
  Receive Date: 20150826
  Receipt Date: 20150907
  Transmission Date: 20151125
  Serious: Yes (Other)
  Sender: FDA-Public Use
  Company Number: US-PFIZER INC-2015281743

PATIENT
  Sex: Female

DRUGS (1)
  1. XANAX [Suspect]
     Active Substance: ALPRAZOLAM
     Dosage: TWO 2MG IN THE MORNING,  ONE 2MG AT LUNCH AND TWO 2MG AT NIGHT
     Route: 048

REACTIONS (2)
  - Drug dependence [Unknown]
  - Drug withdrawal convulsions [Unknown]
